FAERS Safety Report 7655850-5 (Version None)
Quarter: 2011Q3

REPORT INFORMATION
  Report Type: 
  Country: None (occurrence: None)
  Receive Date: 20110729
  Receipt Date: 20110714
  Transmission Date: 20111222
  Serious: Yes (Other)
  Sender: FDA-Public Use
  Company Number: MC201100321

PATIENT
  Age: 53 Year
  Sex: Male
  Weight: 63.5 kg

DRUGS (3)
  1. ANGIOMAX [Suspect]
     Indication: PERCUTANEOUS CORONARY INTERVENTION
     Dosage: 0.75 MG/KG, BOLUS, INTRAVENOUS ; 1.75 MG/KG, HR, INTRAVENOUS
     Route: 042
     Dates: start: 20110101, end: 20110101
  2. ANGIOMAX [Suspect]
     Indication: PERCUTANEOUS CORONARY INTERVENTION
     Dosage: 0.75 MG/KG, BOLUS, INTRAVENOUS ; 1.75 MG/KG, HR, INTRAVENOUS
     Route: 042
     Dates: start: 20110101, end: 20110101
  3. ASPIRIN [Concomitant]

REACTIONS (4)
  - RESPIRATORY ARREST [None]
  - CORONARY ARTERY THROMBOSIS [None]
  - EJECTION FRACTION DECREASED [None]
  - TROPONIN INCREASED [None]
